FAERS Safety Report 4276864-1 (Version None)
Quarter: 2004Q1

REPORT INFORMATION
  Report Type: 
  Country: None (occurrence: None)
  Receive Date: 20040120
  Receipt Date: 20040108
  Transmission Date: 20041129
  Serious: Yes (Death, Hospitalization)
  Sender: FDA-Public Use
  Company Number: 2004194045FR

PATIENT
  Age: 74 Year
  Sex: Female

DRUGS (4)
  1. SOLU-MEDROL [Suspect]
     Dosage: 40 MG, BID, IV
     Route: 042
     Dates: start: 20030616, end: 20030630
  2. PREDNISOLONE [Suspect]
     Dosage: 20 MG, FIVE TIME DAILY, ORAL
     Route: 048
     Dates: start: 20030901, end: 20031031
  3. CARBOPLATIN [Concomitant]
  4. PACLITAXEL [Concomitant]

REACTIONS (6)
  - DIABETES MELLITUS [None]
  - DISEASE PROGRESSION [None]
  - GENERAL PHYSICAL HEALTH DETERIORATION [None]
  - HYPERGLYCAEMIA [None]
  - METASTATIC BRONCHIAL CARCINOMA [None]
  - NEUROPATHY [None]
